FAERS Safety Report 5534367-8 (Version None)
Quarter: 2007Q4

REPORT INFORMATION
  Report Type: 
  Country: None (occurrence: None)
  Receive Date: 20071130
  Receipt Date: 20071115
  Transmission Date: 20080405
  Serious: Yes (Hospitalization)
  Sender: FDA-Public Use
  Company Number: CIP07002440

PATIENT
  Age: 73 Year
  Sex: Male

DRUGS (1)
  1. ASACOL [Suspect]
     Indication: COLITIS ULCERATIVE
     Dosage: 4 G DAILY, ORAL
     Route: 048
     Dates: end: 20050201

REACTIONS (7)
  - ACUTE RESPIRATORY DISTRESS SYNDROME [None]
  - COUGH [None]
  - GENERAL PHYSICAL HEALTH DETERIORATION [None]
  - IDIOPATHIC PULMONARY FIBROSIS [None]
  - INTERSTITIAL LUNG DISEASE [None]
  - PULMONARY FIBROSIS [None]
  - WEIGHT DECREASED [None]
